FAERS Safety Report 15401832 (Version 1)
Quarter: 2018Q3

REPORT INFORMATION
  Report Type: Report from Study
  Country: None (occurrence: US)
  Receive Date: 20180919
  Receipt Date: 20180919
  Transmission Date: 20181010
  Serious: Yes (Hospitalization, Other)
  Sender: FDA-Public Use
  Company Number: US-ABBVIE-18K-163-2483269-00

PATIENT
  Age: 73 Year
  Sex: Female
  Weight: 39.95 kg

DRUGS (1)
  1. VENCLEXTA [Suspect]
     Active Substance: VENETOCLAX
     Indication: ACUTE MYELOID LEUKAEMIA
     Route: 048
     Dates: start: 20170825, end: 20180213

REACTIONS (11)
  - Spinal compression fracture [Unknown]
  - Tinnitus [Unknown]
  - Pneumonia [Recovered/Resolved]
  - Head discomfort [Unknown]
  - Balance disorder [Unknown]
  - Memory impairment [Unknown]
  - Aphonia [Unknown]
  - Dysphagia [Recovered/Resolved]
  - Intentional product use issue [Unknown]
  - Sepsis [Recovered/Resolved]
  - Body height decreased [Unknown]

NARRATIVE: CASE EVENT DATE: 201711
